FAERS Safety Report 20258123 (Version 1)
Quarter: 2021Q4

REPORT INFORMATION
  Report Type: Spontaneous
  Country: US (occurrence: None)
  Receive Date: 20211229
  Receipt Date: 20211229
  Transmission Date: 20220303
  Serious: Yes (Death)
  Sender: FDA-Public Use
  Company Number: None

PATIENT
  Age: 38 Year
  Sex: Female

DRUGS (1)
  1. BOTOX [Suspect]
     Active Substance: ONABOTULINUMTOXINA
     Indication: Osteoporosis
     Dosage: 400 UNITS OTHER INTRAMUSCULAR
     Route: 030
     Dates: start: 202110

REACTIONS (1)
  - Death [None]

NARRATIVE: CASE EVENT DATE: 20211207
